FAERS Safety Report 14855578 (Version 1)
Quarter: 2018Q2

REPORT INFORMATION
  Report Type: Spontaneous
  Country: US (occurrence: US)
  Receive Date: 20180507
  Receipt Date: 20180507
  Transmission Date: 20180711
  Serious: No
  Sender: FDA-Public Use
  Company Number: US-ROCHE-1979457

PATIENT
  Sex: Female

DRUGS (1)
  1. ESBRIET [Suspect]
     Active Substance: PIRFENIDONE
     Indication: PULMONARY FIBROSIS
     Dosage: 2 CAPS PO IN AM, 2 CAPS PO AT NOON, 3 CAPS PO BED
     Route: 048

REACTIONS (1)
  - Nausea [Not Recovered/Not Resolved]
